FAERS Safety Report 8338695-2 (Version None)
Quarter: 2012Q2

REPORT INFORMATION
  Report Type: 
  Country: None (occurrence: None)
  Receive Date: 20120504
  Receipt Date: 20120430
  Transmission Date: 20120825
  Serious: Yes (Other)
  Sender: FDA-Public Use
  Company Number: US-ELI_LILLY_AND_COMPANY-US201205000129

PATIENT
  Age: 75 Year
  Sex: Male
  Weight: 63.583 kg

DRUGS (2)
  1. BYETTA [Suspect]
     Dosage: 10 UG, BID
     Route: 058
     Dates: start: 20100112, end: 20101223
  2. VICTOZA [Concomitant]
     Dosage: 1.8 MG, QD
     Dates: start: 20100223, end: 20101201

REACTIONS (2)
  - PANCREATIC ATROPHY [None]
  - PANCREATIC CARCINOMA [None]
